FAERS Safety Report 16958792 (Version 2)
Quarter: 2022Q3

REPORT INFORMATION
  Report Type: Spontaneous
  Country: US (occurrence: US)
  Receive Date: 20191024
  Receipt Date: 20220914
  Transmission Date: 20221027
  Serious: Yes (Disabling)
  Sender: FDA-Public Use
  Company Number: US-TEVA-2019-US-1126007

PATIENT
  Sex: Female

DRUGS (2)
  1. DOCETAXEL [Suspect]
     Active Substance: DOCETAXEL
     Indication: Product used for unknown indication
     Dosage: DOSAGE:145MG; NUMBER OF CYCLES: 04, FREQUENCY: EVERY 3 WEEKS
     Route: 065
     Dates: start: 20150526, end: 20150720
  2. DOCETAXEL [Suspect]
     Active Substance: DOCETAXEL
     Indication: Product used for unknown indication
     Dosage: DOSAGE:145MG; NUMBER OF CYCLES: 04, FREQUENCY: EVERY 3 WEEKS
     Route: 065
     Dates: start: 20150526, end: 20150720

REACTIONS (1)
  - Alopecia [Not Recovered/Not Resolved]
